FAERS Safety Report 7805945-8 (Version None)
Quarter: 2011Q4

REPORT INFORMATION
  Report Type: 
  Country: None (occurrence: None)
  Receive Date: 20111007
  Receipt Date: 20111007
  Transmission Date: 20120403
  Serious: Yes (Hospitalization)
  Sender: FDA-Public Use
  Company Number: None

PATIENT
  Sex: Male
  Weight: 80.28 kg

DRUGS (2)
  1. TAXOL [Concomitant]
     Dosage: 393 MG
     Dates: end: 20110912
  2. CARBOPLATIN [Suspect]
     Dosage: 888.31 MG
     Dates: end: 20110912

REACTIONS (3)
  - NEUTROPENIA [None]
  - PNEUMONIA [None]
  - HYPERGLYCAEMIA [None]
